FAERS Safety Report 4743788-2 (Version None)
Quarter: 2005Q3

REPORT INFORMATION
  Report Type: 
  Country: None (occurrence: None)
  Receive Date: 20050809
  Receipt Date: 20050727
  Transmission Date: 20060218
  Serious: Yes (Life-Threatening, Hospitalization, Disabling)
  Sender: FDA-Public Use
  Company Number: 2005FR-00159

PATIENT
  Age: 78 Year
  Sex: Male

DRUGS (5)
  1. ASPIRIN [Suspect]
     Indication: CEREBROVASCULAR DISORDER
     Dosage: 75 MG, ORAL
     Route: 048
     Dates: end: 20050704
  2. EPILIM [Concomitant]
  3. AMLODIPINE [Concomitant]
  4. BENDROFLUAZIDE [Concomitant]
  5. PARACETAMOL [Concomitant]

REACTIONS (1)
  - SUBDURAL HAEMATOMA [None]
